FAERS Safety Report 8816977 (Version 1)
Quarter: 2012Q4

REPORT INFORMATION
  Report Type: Spontaneous
  Country: US (occurrence: None)
  Receive Date: 20121002
  Receipt Date: 20121002
  Transmission Date: 20130627
  Serious: Yes (Other)
  Sender: FDA-Public Use
  Company Number: None

PATIENT
  Age: 48 Year
  Sex: Female
  Weight: 59.88 kg

DRUGS (1)
  1. SCOPOLAMINE [Suspect]
     Dosage: one use
     Dates: start: 20120926, end: 20120926

REACTIONS (9)
  - Headache [None]
  - Malaise [None]
  - Muscle tightness [None]
  - Vomiting [None]
  - Dizziness [None]
  - Impaired driving ability [None]
  - Refusal of treatment by patient [None]
  - Fatigue [None]
  - Dehydration [None]
